FAERS Safety Report 25378026 (Version 1)
Quarter: 2025Q2

REPORT INFORMATION
  Report Type: Spontaneous
  Country: DE (occurrence: DE)
  Receive Date: 20250530
  Receipt Date: 20250530
  Transmission Date: 20250716
  Serious: Yes (Life-Threatening, Hospitalization, Other)
  Sender: GILEAD
  Company Number: DE-GILEAD-2025-0714317

PATIENT
  Age: 46 Year
  Sex: Female

DRUGS (20)
  1. EPCLUSA [Suspect]
     Active Substance: SOFOSBUVIR\VELPATASVIR
     Indication: Hepatitis C
     Route: 065
     Dates: start: 20250131
  2. TRANEXAMIC ACID ACCORD [Concomitant]
  3. TORSEMIDE [Concomitant]
     Active Substance: TORSEMIDE
  4. EPLERENONE [Concomitant]
     Active Substance: EPLERENONE
  5. ESIDRIX [Concomitant]
     Active Substance: HYDROCHLOROTHIAZIDE
  6. BISOPROLOL [Concomitant]
     Active Substance: BISOPROLOL
  7. RAMIPRIL [Concomitant]
     Active Substance: RAMIPRIL
  8. PANTOPRAZOLE [Concomitant]
     Active Substance: PANTOPRAZOLE
  9. HEPA MERZ 3000 [Concomitant]
  10. LACTULOSE [Concomitant]
     Active Substance: LACTULOSE
  11. RIFAXIMIN [Concomitant]
     Active Substance: RIFAXIMIN
  12. DAPAGLIFLOZIN [Concomitant]
     Active Substance: DAPAGLIFLOZIN
  13. CHOLECALCIFEROL [Concomitant]
     Active Substance: CHOLECALCIFEROL
  14. VITAMIN B1 [Concomitant]
     Active Substance: THIAMINE HYDROCHLORIDE
  15. POTASSIUM CHLORIDE [Concomitant]
     Active Substance: POTASSIUM CHLORIDE
  16. ALLOPURINOL [Concomitant]
     Active Substance: ALLOPURINOL
  17. ACETAZOLAMIDE [Concomitant]
     Active Substance: ACETAZOLAMIDE
  18. BELIC [BUTYLSCOPOLAMINE BROMIDE] [Concomitant]
  19. ONDANSETRON [Concomitant]
     Active Substance: ONDANSETRON
  20. METAMIZOLE [Concomitant]
     Active Substance: METAMIZOLE

REACTIONS (17)
  - Internal haemorrhage [Not Recovered/Not Resolved]
  - Epistaxis [Not Recovered/Not Resolved]
  - Mouth haemorrhage [Not Recovered/Not Resolved]
  - Mucosal haemorrhage [Not Recovered/Not Resolved]
  - Renal failure [Not Recovered/Not Resolved]
  - Hepatic failure [Not Recovered/Not Resolved]
  - Hyperammonaemia [Recovering/Resolving]
  - Hepatic mass [Not Recovered/Not Resolved]
  - Hepatic neoplasm [Not Recovered/Not Resolved]
  - Renal impairment [Unknown]
  - Hypokalaemia [Unknown]
  - Haematochezia [Unknown]
  - Gastrointestinal haemorrhage [Unknown]
  - Hypocalcaemia [Unknown]
  - Hyponatraemia [Unknown]
  - Hypochloraemia [Unknown]
  - Normochromic normocytic anaemia [Recovering/Resolving]
